FAERS Safety Report 18768561 (Version 3)
Quarter: 2021Q3

REPORT INFORMATION
  Report Type: Spontaneous
  Country: US (occurrence: US)
  Receive Date: 20210121
  Receipt Date: 20210915
  Transmission Date: 20211014
  Serious: Yes (Hospitalization)
  Sender: FDA-Public Use
  Company Number: US-GLAXOSMITHKLINE-US2021AMR012052

PATIENT
  Age: 62 Year
  Sex: Female

DRUGS (3)
  1. ZEJULA [Suspect]
     Active Substance: NIRAPARIB
     Dosage: UNK
  2. ZEJULA [Suspect]
     Active Substance: NIRAPARIB
     Dosage: 200 MG, QD, NIGHTLY
     Route: 048
  3. ZEJULA [Suspect]
     Active Substance: NIRAPARIB
     Indication: OVARIAN CANCER
     Dosage: 300 MG
     Dates: start: 20201215

REACTIONS (5)
  - Fungal infection [Unknown]
  - Localised infection [Recovering/Resolving]
  - Pain in extremity [Recovering/Resolving]
  - Hospitalisation [Unknown]
  - Haemoglobin abnormal [Unknown]

NARRATIVE: CASE EVENT DATE: 202101
